FAERS Safety Report 9814746 (Version 3)
Quarter: 2014Q3

REPORT INFORMATION
  Report Type: Spontaneous
  Country: US (occurrence: US)
  Receive Date: 20140113
  Receipt Date: 20140811
  Transmission Date: 20150326
  Serious: Yes (Hospitalization)
  Sender: FDA-Public Use
  Company Number: US-SANOFI-AVENTIS-2013SA065097

PATIENT
  Age: 62 Year
  Sex: Female

DRUGS (12)
  1. TAXOTERE [Suspect]
     Active Substance: DOCETAXEL
     Indication: BREAST CANCER
     Route: 042
     Dates: start: 20130212, end: 20130410
  2. CARBOPLATIN. [Suspect]
     Active Substance: CARBOPLATIN
     Indication: BREAST CANCER
     Route: 042
     Dates: start: 20130212, end: 20130410
  3. MEGACE [Concomitant]
     Active Substance: MEGESTROL ACETATE
     Dosage: DOSE:625 MILLIGRAM(S)/MILLILITRE
     Dates: start: 20130305
  4. POTASSIUM GUAIACOLSULFONATE [Concomitant]
     Active Substance: POTASSIUM GUAIACOLSULFONATE
  5. XANAX [Concomitant]
     Active Substance: ALPRAZOLAM
     Dates: start: 2003
  6. DILTIAZEM [Concomitant]
     Active Substance: DILTIAZEM
     Dates: start: 2003
  7. ULTRAM [Concomitant]
     Active Substance: TRAMADOL HYDROCHLORIDE
     Dates: start: 20130212
  8. ATIVAN [Concomitant]
     Active Substance: LORAZEPAM
     Dates: start: 200003
  9. NEXIUM [Concomitant]
     Active Substance: ESOMEPRAZOLE MAGNESIUM
     Dates: start: 20130324
  10. TRASTUZUMAB [Suspect]
     Active Substance: TRASTUZUMAB
     Indication: BREAST CANCER
     Route: 042
     Dates: start: 20130212, end: 20130410
  11. CARAFATE [Concomitant]
     Active Substance: SUCRALFATE
     Dosage: DOSE:110 MILLIGRAM(S)/MILLILITRE
     Dates: start: 20130409
  12. LORTAB [Concomitant]
     Active Substance: ACETAMINOPHEN\HYDROCODONE BITARTRATE
     Dates: start: 20130201

REACTIONS (4)
  - Clostridium difficile colitis [Recovered/Resolved]
  - Colitis [Recovered/Resolved]
  - Gastroenteritis [Recovered/Resolved]
  - Gastroenteritis radiation [Recovered/Resolved]

NARRATIVE: CASE EVENT DATE: 20130410
